FAERS Safety Report 18893283 (Version 3)
Quarter: 2021Q2

REPORT INFORMATION
  Report Type: Spontaneous
  Country: US (occurrence: US)
  Receive Date: 20210215
  Receipt Date: 20210412
  Transmission Date: 20210717
  Serious: No
  Sender: FDA-Public Use
  Company Number: US-SA-2021SA049964

PATIENT
  Age: 60 Year
  Sex: Male

DRUGS (6)
  1. VITAMIN B [VITAMIN B NOS] [Concomitant]
  2. CLONAZEPAM. [Concomitant]
     Active Substance: CLONAZEPAM
  3. DUPIXENT [Suspect]
     Active Substance: DUPILUMAB
     Indication: ASTHMA
     Dosage: 300 MG, QOW
     Route: 048
     Dates: start: 20200526
  4. VITAMIN D [COLECALCIFEROL] [Concomitant]
     Active Substance: CHOLECALCIFEROL
  5. DUPIXENT [Suspect]
     Active Substance: DUPILUMAB
     Dosage: 300 MG, QOW
     Route: 058
     Dates: start: 20200528
  6. ALBUTEROL [SALBUTAMOL] [Suspect]
     Active Substance: ALBUTEROL

REACTIONS (6)
  - Oropharyngeal discomfort [Unknown]
  - Oral pain [Unknown]
  - Candida infection [Unknown]
  - Rash [Recovered/Resolved]
  - Rash [Recovering/Resolving]
  - Incorrect route of product administration [Unknown]

NARRATIVE: CASE EVENT DATE: 20210208
